FAERS Safety Report 9507544 (Version 1)
Quarter: 2013Q3

REPORT INFORMATION
  Report Type: Spontaneous
  Country: US (occurrence: None)
  Receive Date: 20130904
  Receipt Date: 20130904
  Transmission Date: 20140515
  Serious: Yes (Other)
  Sender: FDA-Public Use
  Company Number: ACO_38122_2013

PATIENT
  Age: 30 Year
  Sex: Male

DRUGS (6)
  1. TIZANIDINE (TIZANIDINE) [Suspect]
     Indication: PRODUCT USED FOR UNKNOWN INDICATION
  2. BUTRANS [Suspect]
  3. KEPPRA (LEVETIRACETAM) [Suspect]
  4. ZOLOFT (SERTRALINE HYDROCHLORIDE) [Suspect]
  5. PERCOCET [Suspect]
     Dosage: 10/325, UNK
  6. VALIUM (DIAZEPAM) [Suspect]

REACTIONS (2)
  - Suicidal ideation [None]
  - Drug interaction [None]
